FAERS Safety Report 7736806-0 (Version None)
Quarter: 2011Q3

REPORT INFORMATION
  Report Type: 
  Country: None (occurrence: None)
  Receive Date: 20110908
  Receipt Date: 20110908
  Transmission Date: 20111222
  Serious: Yes (Life-Threatening, Hospitalization)
  Sender: FDA-Public Use
  Company Number: None

PATIENT
  Age: 33 Year
  Sex: Male
  Weight: 91 kg

DRUGS (8)
  1. CYMBALTA [Concomitant]
     Route: 048
  2. TIZANIDINE HCL [Concomitant]
     Route: 048
  3. ETANERCEPT [Suspect]
     Indication: RHEUMATOID ARTHRITIS
     Dosage: 50 MG
     Route: 058
     Dates: start: 20101107, end: 20110907
  4. ROZEREM [Concomitant]
     Route: 048
  5. FLEXERIL [Concomitant]
     Route: 048
  6. OXYCONTIN [Concomitant]
     Route: 048
  7. ZOFRAN [Concomitant]
     Route: 048
  8. LAMICTAL [Concomitant]
     Route: 048

REACTIONS (7)
  - DYSPNOEA [None]
  - INJECTION SITE PAIN [None]
  - INJECTION SITE SWELLING [None]
  - VISION BLURRED [None]
  - FALL [None]
  - HEADACHE [None]
  - VOMITING [None]
